FAERS Safety Report 6298087-7 (Version None)
Quarter: 2009Q3

REPORT INFORMATION
  Report Type: 
  Country: None (occurrence: None)
  Receive Date: 20090804
  Receipt Date: 20090804
  Transmission Date: 20100115
  Serious: No
  Sender: FDA-Public Use
  Company Number: None

PATIENT
  Age: 69 Year
  Sex: Male
  Weight: 93.441 kg

DRUGS (2)
  1. FLOMAX [Suspect]
     Indication: BENIGN PROSTATIC HYPERPLASIA
     Dosage: 0.4 MG NIGHTLY
     Dates: start: 20080418, end: 20090802
  2. SIMVASTATIN [Concomitant]

REACTIONS (6)
  - ANURIA [None]
  - ERECTILE DYSFUNCTION [None]
  - NOCTURIA [None]
  - RHINORRHOEA [None]
  - SEMINAL VESICULAR DISORDER [None]
  - SINUSITIS [None]
